FAERS Safety Report 10457668 (Version 1)
Quarter: 2014Q3

REPORT INFORMATION
  Report Type: Spontaneous
  Country: US (occurrence: US)
  Receive Date: 20140916
  Receipt Date: 20140916
  Transmission Date: 20150326
  Serious: No
  Sender: FDA-Public Use
  Company Number: US-PFIZER INC-2014255030

PATIENT
  Age: 52 Year
  Sex: Male
  Weight: 68.03 kg

DRUGS (1)
  1. VIAGRA [Suspect]
     Active Substance: SILDENAFIL CITRATE
     Indication: ERECTILE DYSFUNCTION
     Dosage: 25 MG (100MG TABLET BY CUTTING INTO 4 PIECES OF 25MG), UNK

REACTIONS (2)
  - Oropharyngeal pain [Unknown]
  - Flushing [Unknown]
